FAERS Safety Report 9878200 (Version 1)
Quarter: 2014Q1

REPORT INFORMATION
  Report Type: Report from Study
  Country: US (occurrence: US)
  Receive Date: 20140206
  Receipt Date: 20140206
  Transmission Date: 20141002
  Serious: Yes (Other)
  Sender: FDA-Public Use
  Company Number: US-ABBVIE-14P-163-1195874-00

PATIENT
  Sex: Female
  Weight: 90.8 kg

DRUGS (5)
  1. HUMIRA [Suspect]
     Indication: PSORIATIC ARTHROPATHY
     Route: 058
     Dates: start: 201305
  2. LEVOTHYROXINE [Concomitant]
     Indication: HYPOTHYROIDISM
  3. PLAQUENIL [Concomitant]
     Indication: PSORIATIC ARTHROPATHY
  4. CELEBREX [Concomitant]
     Indication: PSORIATIC ARTHROPATHY
  5. PAXIL [Concomitant]
     Indication: ANXIETY

REACTIONS (7)
  - Ovarian cyst [Recovered/Resolved]
  - Abdominal pain [Not Recovered/Not Resolved]
  - Abdominal adhesions [Not Recovered/Not Resolved]
  - Ovarian cyst ruptured [Not Recovered/Not Resolved]
  - Therapeutic response unexpected [Not Recovered/Not Resolved]
  - Iridocyclitis [Not Recovered/Not Resolved]
  - Iridocyclitis [Recovered/Resolved]
